FAERS Safety Report 7847097-4 (Version None)
Quarter: 2011Q4

REPORT INFORMATION
  Report Type: 
  Country: None (occurrence: None)
  Receive Date: 20111025
  Receipt Date: 20111020
  Transmission Date: 20120403
  Serious: Yes (Disabling)
  Sender: FDA-Public Use
  Company Number: GB-MERCK-1108GBR00060

PATIENT
  Age: 78 Year
  Sex: Female
  Weight: 60 kg

DRUGS (6)
  1. CALCIUM (UNSPECIFIED) AND VITAMIN D (UNSPECIFIED) [Concomitant]
     Route: 065
  2. FOSAMAX [Suspect]
     Indication: OSTEOPOROTIC FRACTURE
     Route: 048
     Dates: start: 20100911, end: 20110408
  3. OMEPRAZOLE [Concomitant]
     Route: 065
  4. ALUMINUM HYDROXIDE AND MAGNESIUM CARBONATE [Concomitant]
     Route: 065
  5. ACETAMINOPHEN [Concomitant]
     Route: 065
  6. BENDROFLUMETHIAZIDE [Concomitant]
     Route: 065

REACTIONS (2)
  - OSTEONECROSIS OF JAW [None]
  - DENTAL DISCOMFORT [None]
